FAERS Safety Report 4883721-6 (Version None)
Quarter: 2005Q4

REPORT INFORMATION
  Report Type: 
  Country: None (occurrence: None)
  Receive Date: 20051201
  Receipt Date: 20050904
  Transmission Date: 20060501
  Serious: No
  Sender: FDA-Public Use
  Company Number: 2005PV001784

PATIENT
  Age: 59 Year
  Sex: Female
  Weight: 94.8018 kg

DRUGS (6)
  1. BYETTA [Suspect]
     Indication: DIABETES MELLITUS NON-INSULIN-DEPENDENT
     Dosage: 5 MCG; BID; SC
     Route: 058
     Dates: start: 20050901, end: 20050902
  2. ACTOS [Concomitant]
  3. GLUCOPHAGE XR [Concomitant]
  4. FLEXERIL [Concomitant]
  5. FUROSEMIDE [Concomitant]
  6. TOPROL-XL [Concomitant]

REACTIONS (3)
  - ABDOMINAL DISTENSION [None]
  - PRURITUS [None]
  - WEIGHT INCREASED [None]
